FAERS Safety Report 14699130 (Version 6)
Quarter: 2019Q4

REPORT INFORMATION
  Report Type: Report from Study
  Country: PL (occurrence: PL)
  Receive Date: 20180330
  Receipt Date: 20191113
  Transmission Date: 20200122
  Serious: Yes (Hospitalization)
  Sender: FDA-Public Use
  Company Number: PL-ROCHE-2097001

PATIENT
  Age: 50 Year
  Sex: Male
  Weight: 67 kg

DRUGS (3)
  1. ATEZOLIZUMAB. [Suspect]
     Active Substance: ATEZOLIZUMAB
     Indication: MALIGNANT MELANOMA
     Dosage: ON 07/MAR/2018, THE PATIENT RECEIVED MOST RECENT DOSE OF ATEZOLIZUMAB (TOTAL VOLUME: 250 ML)
     Route: 042
     Dates: start: 20180221
  2. VEMURAFENIB. [Suspect]
     Active Substance: VEMURAFENIB
     Indication: MALIGNANT MELANOMA
     Dosage: ON 13/MAR/2018, THE PATIENT RECEIVED MOST RECENT DOSE OF DOSE BLINDED VEMURAFENIB AT 8 TABLETS.
     Route: 048
     Dates: start: 20180124
  3. COBIMETINIB. [Suspect]
     Active Substance: COBIMETINIB
     Indication: MALIGNANT MELANOMA
     Dosage: ON 13/MAR/2018, THE PATIENT RECEIVED MOST RECENT DOSE OF COBIMETINIB AT 60 MG PRIOR TO SERIOUS ADVER
     Route: 048
     Dates: start: 20180124

REACTIONS (1)
  - Hepatotoxicity [Recovered/Resolved]

NARRATIVE: CASE EVENT DATE: 20180307
